FAERS Safety Report 8598714-5 (Version None)
Quarter: 2012Q3

REPORT INFORMATION
  Report Type: 
  Country: None (occurrence: None)
  Receive Date: 20120816
  Receipt Date: 19960820
  Transmission Date: 20120928
  Serious: Yes (Hospitalization)
  Sender: FDA-Public Use
  Company Number: US-ROCHE-1100693

PATIENT
  Sex: Female

DRUGS (5)
  1. HEPARIN [Concomitant]
     Route: 042
  2. ACTIVASE [Suspect]
     Indication: MYOCARDIAL INFARCTION
     Route: 065
  3. NITROGLYCERIN [Concomitant]
     Route: 042
  4. ASPIRIN [Concomitant]
     Route: 065
  5. LOPRESSOR [Concomitant]
     Route: 065

REACTIONS (4)
  - POSTINFARCTION ANGINA [None]
  - CHEST PAIN [None]
  - HYPERTENSION [None]
  - DYSPNOEA [None]
